FAERS Safety Report 25789007 (Version 1)
Quarter: 2025Q3

REPORT INFORMATION
  Report Type: Spontaneous
  Country: US (occurrence: US)
  Receive Date: 20250911
  Receipt Date: 20250911
  Transmission Date: 20251020
  Serious: Yes (Other)
  Sender: ALEXION PHARMACEUTICALS
  Company Number: US-AstraZeneca-CH-00943984AP

PATIENT
  Age: 72 Year
  Sex: Female

DRUGS (2)
  1. TEZSPIRE [Suspect]
     Active Substance: TEZEPELUMAB-EKKO
     Route: 065
  2. TEZSPIRE [Suspect]
     Active Substance: TEZEPELUMAB-EKKO

REACTIONS (4)
  - Product dose omission issue [Unknown]
  - Wrong technique in product usage process [Unknown]
  - Diabetes mellitus [Unknown]
  - Device leakage [Unknown]

NARRATIVE: CASE EVENT DATE: 20250903
